FAERS Safety Report 11436828 (Version 1)
Quarter: 2015Q3

REPORT INFORMATION
  Report Type: Spontaneous
  Country: US (occurrence: US)
  Receive Date: 20150821
  Receipt Date: 20150821
  Transmission Date: 20151125
  Serious: Yes (Other)
  Sender: FDA-Public Use
  Company Number: US-ELI_LILLY_AND_COMPANY-US200701001029

PATIENT
  Age: 68 Year
  Sex: Male
  Weight: 95.69 kg

DRUGS (11)
  1. CYMBALTA [Suspect]
     Active Substance: DULOXETINE HYDROCHLORIDE
     Dosage: UNK MG, UNK
  2. ASPIRIN. [Concomitant]
     Active Substance: ASPIRIN
     Dosage: UNK MG, UNK
  3. ALTACE [Concomitant]
     Active Substance: RAMIPRIL
     Dosage: UNK MG, UNK
  4. AMBIEN [Concomitant]
     Active Substance: ZOLPIDEM TARTRATE
     Dosage: UNK MG, UNK
  5. FISH OIL [Concomitant]
     Active Substance: FISH OIL
     Dosage: UNK MG, UNK
  6. CARDIZEM [Concomitant]
     Active Substance: DILTIAZEM HYDROCHLORIDE
     Dosage: UNK MG, UNK
  7. PREVACID [Concomitant]
     Active Substance: LANSOPRAZOLE
     Dosage: UNK MG, UNK
  8. VALIUM                                  /NET/ [Concomitant]
     Dosage: UNK MG, AS NEEDED
  9. SINGULAIR [Concomitant]
     Active Substance: MONTELUKAST SODIUM
     Dosage: UNK MG, UNK
  10. GLIPIZIDE. [Concomitant]
     Active Substance: GLIPIZIDE
     Dosage: UNK MG, UNK
  11. DHE [Concomitant]
     Active Substance: DIHYDROERGOTAMINE
     Dosage: UNK MG, UNK

REACTIONS (5)
  - Tremor [Unknown]
  - Withdrawal syndrome [Unknown]
  - Memory impairment [Unknown]
  - Suicidal behaviour [Recovered/Resolved]
  - Gastrointestinal disorder [Unknown]
